FAERS Safety Report 18861373 (Version 21)
Quarter: 2022Q3

REPORT INFORMATION
  Report Type: Spontaneous
  Country: GB (occurrence: GB)
  Receive Date: 20210208
  Receipt Date: 20220906
  Transmission Date: 20221027
  Serious: Yes (Hospitalization, Other)
  Sender: FDA-Public Use
  Company Number: GB-MYLANLABS-2018M1088760

PATIENT
  Age: 27 Year
  Sex: Male

DRUGS (40)
  1. OLANZAPINE [Suspect]
     Active Substance: OLANZAPINE
     Indication: Schizophrenia
     Dosage: UNK
     Route: 065
     Dates: start: 201801
  2. OLANZAPINE [Suspect]
     Active Substance: OLANZAPINE
     Dosage: UNK
     Route: 065
     Dates: start: 201811
  3. OLANZAPINE [Suspect]
     Active Substance: OLANZAPINE
     Dosage: UNK
     Route: 065
     Dates: start: 20181130
  4. CLOZARIL [Suspect]
     Active Substance: CLOZAPINE
     Indication: Schizophrenia
     Dosage: UNKNOWN
     Route: 048
     Dates: start: 20181115
  5. CLOZARIL [Suspect]
     Active Substance: CLOZAPINE
     Dosage: 1 DOSAGE FORM, DAILY
     Route: 048
     Dates: start: 20191120, end: 20191202
  6. CLOZARIL [Suspect]
     Active Substance: CLOZAPINE
     Dosage: UNK
     Route: 065
     Dates: start: 20181130
  7. CLOZARIL [Suspect]
     Active Substance: CLOZAPINE
     Dosage: UNK
     Route: 065
     Dates: start: 20191202
  8. CLOZARIL [Suspect]
     Active Substance: CLOZAPINE
     Dosage: 1 DOSAGE FORM, DAILY
     Route: 048
     Dates: start: 20181212, end: 20181231
  9. CLOZARIL [Suspect]
     Active Substance: CLOZAPINE
     Dosage: 1 DOSAGE FORM, ONCE A DAY
     Route: 048
     Dates: start: 20181230
  10. CLOZARIL [Suspect]
     Active Substance: CLOZAPINE
     Dosage: UNK
     Route: 065
     Dates: start: 20211231
  11. CLOZARIL [Suspect]
     Active Substance: CLOZAPINE
     Dosage: 1 DOSAGE FORM, ONCE A DAY
     Route: 048
     Dates: start: 20181231
  12. CLONAZEPAM [Concomitant]
     Active Substance: CLONAZEPAM
     Indication: Product used for unknown indication
     Dosage: 2.5 MILLILITER, ONCE A DAY
     Route: 048
  13. CLONAZEPAM [Concomitant]
     Active Substance: CLONAZEPAM
     Dosage: 2.5 MILLILITER, FOUR TIMES/DAY
     Route: 065
  14. CLONAZEPAM [Concomitant]
     Active Substance: CLONAZEPAM
     Dosage: 10 MILLILITER, ONCE A DAY(2.5 MILLILITER, QID )
     Route: 065
  15. CLONAZEPAM [Concomitant]
     Active Substance: CLONAZEPAM
     Dosage: 2.5 ML, DAILY
     Route: 048
  16. CLONAZEPAM [Concomitant]
     Active Substance: CLONAZEPAM
     Dosage: 2.5 ML, EVERY 4 DAYS
     Route: 048
  17. CLONAZEPAM [Concomitant]
     Active Substance: CLONAZEPAM
     Dosage: 40 MILLILITER, ONCE A DAY
     Route: 065
  18. LI LIQUID [Concomitant]
     Indication: Product used for unknown indication
     Dosage: 1 DOSAGE FORM, ONCE A DAY (PM) (1 DOSAGE FORM, DAILY)
     Route: 005
  19. LI LIQUID [Concomitant]
     Dosage: 15 MILLILITER, ONCE A DAY(15 MILLILITER, DAILY (600MG)
     Route: 005
  20. LI LIQUID [Concomitant]
     Dosage: UNK, ONCE A DAY (UNK, QD (PM) )
     Route: 005
  21. QUETIAPINE [Concomitant]
     Active Substance: QUETIAPINE
     Indication: Product used for unknown indication
     Dosage: 20 MILLIMOLE, ONCE A DAY (PM)
     Route: 065
  22. QUETIAPINE [Concomitant]
     Active Substance: QUETIAPINE
     Dosage: 20 MILLIMOLE, ONCE A DAY
     Route: 005
  23. QUETIAPINE [Concomitant]
     Active Substance: QUETIAPINE
     Dosage: 20 MILLILITER, ONCE A DAY
     Route: 065
  24. QUETIAPINE [Concomitant]
     Active Substance: QUETIAPINE
     Dosage: 10 MILLILITER, ONCE A DAY (EACH MORNING)
     Route: 065
  25. VALPROATE SODIUM [Concomitant]
     Active Substance: VALPROATE SODIUM
     Indication: Product used for unknown indication
     Dosage: 25 MILLIMOLE, ONCE A DAY, PM (25 MMOL, DAILY)
     Route: 065
  26. VALPROATE SODIUM [Concomitant]
     Active Substance: VALPROATE SODIUM
     Dosage: 18.75 MILLIMOLE, ONCE A DAY (18.75 MMOL, DAILY) AM
     Route: 065
  27. VALPROATE SODIUM [Concomitant]
     Active Substance: VALPROATE SODIUM
     Dosage: UNK, ONCE A DAY (AM)
     Route: 065
  28. VALPROATE SODIUM [Concomitant]
     Active Substance: VALPROATE SODIUM
     Dosage: UNK, DAILY PM
     Route: 065
  29. VALPROATE SODIUM [Concomitant]
     Active Substance: VALPROATE SODIUM
     Dosage: UNK, DAILY AM
     Route: 065
  30. VALPROATE SODIUM [Concomitant]
     Active Substance: VALPROATE SODIUM
     Dosage: 18.75 ML, UNKNOWN AM
     Route: 065
  31. VALPROATE SODIUM [Concomitant]
     Active Substance: VALPROATE SODIUM
     Dosage: 25 MMOL, DAILY PM
     Route: 065
  32. VALPROATE SODIUM [Concomitant]
     Active Substance: VALPROATE SODIUM
     Dosage: 18.75 MMOL, DAILY
     Route: 065
  33. LITHIUM CITRATE [Concomitant]
     Active Substance: LITHIUM CITRATE
     Indication: Product used for unknown indication
     Dosage: 1 DOSAGE FORM, ONCE A DAY (1 DOSAGE FORM, QD (PM) )
     Route: 005
  34. LITHIUM CITRATE [Concomitant]
     Active Substance: LITHIUM CITRATE
     Dosage: 15 MILLILITER, ONCE A DAY (15 MILLILITER, QD (600MG) )
     Route: 065
  35. LITHIUM CITRATE [Concomitant]
     Active Substance: LITHIUM CITRATE
     Dosage: 1 DOSAGE FORM, ONCE A DAY (1 DOSAGE FORM, QD )
     Route: 005
  36. LITHIUM CITRATE [Concomitant]
     Active Substance: LITHIUM CITRATE
     Dosage: 15 MILLILITER, ONCE A DAY (15 MILLILITER, QD (15 ML (600MG), DAILY) )
     Route: 005
  37. LITHIUM [Concomitant]
     Active Substance: LITHIUM
     Indication: Product used for unknown indication
     Dosage: 1 DF, QD (PM)
     Route: 005
  38. LITHIUM [Concomitant]
     Active Substance: LITHIUM
     Dosage: 15 MILLILITER (600MG), HS
     Route: 005
  39. LITHIUM [Concomitant]
     Active Substance: LITHIUM
     Dosage: 1 DF, QD (PM)
     Route: 005
  40. LITHIUM [Concomitant]
     Active Substance: LITHIUM
     Dosage: 15 ML (600MG), DAILY
     Route: 005

REACTIONS (10)
  - Abnormal behaviour [Unknown]
  - Neutropenia [Recovered/Resolved]
  - White blood cell count decreased [Recovered/Resolved]
  - White blood cell count increased [Recovered/Resolved]
  - Neutrophil count increased [Recovered/Resolved]
  - Eosinophilia [Recovered/Resolved]
  - Aggression [Unknown]
  - Malaise [Unknown]
  - Drug ineffective [Unknown]
  - Off label use [Unknown]

NARRATIVE: CASE EVENT DATE: 20180101
